FAERS Safety Report 21853248 (Version 1)
Quarter: 2023Q1

REPORT INFORMATION
  Report Type: Spontaneous
  Country: US (occurrence: None)
  Receive Date: 20230111
  Receipt Date: 20230111
  Transmission Date: 20230418
  Serious: Yes (Other)
  Sender: FDA-Public Use
  Company Number: None

PATIENT
  Age: 59 Year
  Sex: Male

DRUGS (4)
  1. TALTZ [Suspect]
     Active Substance: IXEKIZUMAB
     Indication: Psoriasis
     Dosage: INJECT 1 PEN UNDER THE SKIN (SUBCUTANEOUS INJECTION) EVERY 4 WEEKS
     Route: 058
     Dates: start: 20180405
  2. ENBREL SRCLK INJ [Concomitant]
  3. NEXIUM CAP [Concomitant]
  4. TAMSULOSIN [Concomitant]
     Active Substance: TAMSULOSIN

REACTIONS (2)
  - Knee arthroplasty [None]
  - Therapy interrupted [None]

NARRATIVE: CASE EVENT DATE: 20221201
